FAERS Safety Report 10166896 (Version 1)
Quarter: 2014Q2

REPORT INFORMATION
  Report Type: Spontaneous
  Country: IT (occurrence: None)
  Receive Date: 20140508
  Receipt Date: 20140508
  Transmission Date: 20141212
  Serious: Yes (Other)
  Sender: FDA-Public Use
  Company Number: SYM-2014-20257

PATIENT
  Age: 58 Year
  Sex: Male

DRUGS (3)
  1. RIBAVIRIN [Suspect]
     Indication: CHRONIC HEPATITIS C
     Dates: start: 2004, end: 2004
  2. PEG-INTERFERON ALFA 2B [Suspect]
     Indication: HEPATITIS C
     Dates: start: 2004, end: 2004
  3. PEG-INTERFERON ALFA 2A [Suspect]
     Indication: HEPATITIS C
     Dates: start: 201009, end: 201012

REACTIONS (3)
  - Glomerulonephritis membranoproliferative [None]
  - No therapeutic response [None]
  - Nephropathy toxic [None]
